FAERS Safety Report 24590258 (Version 1)
Quarter: 2024Q4

REPORT INFORMATION
  Report Type: Spontaneous
  Country: FR (occurrence: FR)
  Receive Date: 20241107
  Receipt Date: 20241107
  Transmission Date: 20250115
  Serious: Yes (Hospitalization)
  Sender: PFIZER
  Company Number: None

PATIENT
  Age: 19 Year
  Sex: Female
  Weight: 56 kg

DRUGS (20)
  1. CYTARABINE [Suspect]
     Active Substance: CYTARABINE
     Indication: Acute myeloid leukaemia
     Dosage: 30 MG ACCORDING TO PROTOCOL
     Route: 024
     Dates: start: 20240328, end: 20240329
  2. CYTARABINE [Suspect]
     Active Substance: CYTARABINE
     Dosage: 170 MG ACCORDING TO PROTOCOL
     Route: 042
     Dates: start: 20240328, end: 20240407
  3. CYTARABINE [Suspect]
     Active Substance: CYTARABINE
     Dosage: 30 MG ACCORDING TO PROTOCOL
     Route: 024
     Dates: start: 20240503, end: 20240504
  4. CYTARABINE [Suspect]
     Active Substance: CYTARABINE
     Dosage: 30 MG ACCORDING TO PROTOCOL
     Route: 024
     Dates: start: 20240624, end: 20240625
  5. CYTARABINE [Suspect]
     Active Substance: CYTARABINE
     Dosage: 240 MG ACCORDING TO PROTOCOL
     Route: 042
     Dates: start: 20240624
  6. GEMTUZUMAB OZOGAMICIN [Suspect]
     Active Substance: GEMTUZUMAB OZOGAMICIN
     Indication: Acute myeloid leukaemia
     Dosage: 5 MG ACCORDING TO PROTOCOL
     Route: 042
     Dates: start: 20240405, end: 20240406
  7. MITOXANTRONE HYDROCHLORIDE [Suspect]
     Active Substance: MITOXANTRONE HYDROCHLORIDE
     Indication: Acute myeloid leukaemia
     Dosage: 20 MG ACCORDING TO PROTOCOL
     Route: 042
     Dates: start: 20240328, end: 20240401
  8. ONDANSETRON [Concomitant]
     Active Substance: ONDANSETRON
     Dosage: UNK
  9. ERYNJA [Concomitant]
     Dosage: UNK
  10. ACETAMINOPHEN [Concomitant]
     Active Substance: ACETAMINOPHEN
     Dosage: UNK
  11. POLARAMINE [Concomitant]
     Active Substance: DEXCHLORPHENIRAMINE MALEATE
     Dosage: UNK
  12. PIPERACILLIN SODIUM AND TAZOBACTAM SODIUM PANPHARMA [Concomitant]
     Dosage: UNK
  13. AMBISOME [Concomitant]
     Active Substance: AMPHOTERICIN B
     Dosage: POWDER FOR SUSPENSION FOR LIPOSOME FOR INFUSION
  14. COTRIMOXAZOLE [Concomitant]
     Active Substance: SULFAMETHOXAZOLE\TRIMETHOPRIM
     Dosage: UNK
  15. OMEPRAZOLE [Concomitant]
     Active Substance: OMEPRAZOLE
     Dosage: UNK
  16. FUNGIZONE [Concomitant]
     Active Substance: AMPHOTERICIN B
     Dosage: UNK
  17. TRANEXAMIC ACID [Concomitant]
     Active Substance: TRANEXAMIC ACID
     Dosage: UNK
  18. METOCLOPRAMIDE [Concomitant]
     Active Substance: METOCLOPRAMIDE
     Dosage: 10 MG/2 ML, SOLUTION FOR INJECTION IN AMPOULE
  19. FUROSEMIDE [Concomitant]
     Active Substance: FUROSEMIDE
     Dosage: 20 MG/2 ML
  20. NALBUPHINE HYDROCHLORIDE [Concomitant]
     Active Substance: NALBUPHINE HYDROCHLORIDE
     Dosage: 20MG/2ML

REACTIONS (1)
  - Fungal infection [Recovered/Resolved]

NARRATIVE: CASE EVENT DATE: 20240412
